FAERS Safety Report 5156556-7 (Version None)
Quarter: 2006Q4

REPORT INFORMATION
  Report Type: 
  Country: None (occurrence: None)
  Receive Date: 20061114
  Receipt Date: 20061102
  Transmission Date: 20070319
  Serious: Yes (Other)
  Sender: FDA-Public Use
  Company Number: 2006134733

PATIENT
  Sex: Male
  Weight: 97.5234 kg

DRUGS (5)
  1. CADUET [Suspect]
     Indication: BLOOD CHOLESTEROL
     Dosage: 5/10MG (1 IN 1 D)
     Dates: start: 20060501, end: 20061028
  2. CADUET [Suspect]
     Indication: HYPERTENSION
     Dosage: 5/10MG (1 IN 1 D)
     Dates: start: 20060501, end: 20061028
  3. LISINOPRIL [Suspect]
     Indication: BLOOD CHOLESTEROL
     Dosage: (20 MG);
     Dates: end: 20060101
  4. ROSIGLITAZONE MALEATE [Concomitant]
  5. GLYBURIDE [Concomitant]

REACTIONS (10)
  - CARDIAC DISORDER [None]
  - DENTAL CARIES [None]
  - DRUG WITHDRAWAL SYNDROME [None]
  - ELECTROCARDIOGRAM ABNORMAL [None]
  - EXTRAOCULAR MUSCLE PARESIS [None]
  - HYPOAESTHESIA [None]
  - MUSCLE SPASMS [None]
  - TOOTH DISORDER [None]
  - UNEVALUABLE EVENT [None]
  - VISION BLURRED [None]
